FAERS Safety Report 25799083 (Version 2)
Quarter: 2025Q3

REPORT INFORMATION
  Report Type: Spontaneous
  Country: JP (occurrence: JP)
  Receive Date: 20250913
  Receipt Date: 20250926
  Transmission Date: 20251021
  Serious: Yes (Death, Life-Threatening, Hospitalization, Other)
  Sender: ACCORD
  Company Number: JP-Accord-504273

PATIENT
  Age: 75 Year
  Sex: Male

DRUGS (1)
  1. METHOTREXATE [Suspect]
     Active Substance: METHOTREXATE
     Indication: Central nervous system lymphoma

REACTIONS (15)
  - Skin disorder [Unknown]
  - General physical health deterioration [Unknown]
  - Febrile neutropenia [Unknown]
  - Nephropathy toxic [Unknown]
  - Toxic epidermal necrolysis [Unknown]
  - Atypical mycobacterial infection [Unknown]
  - Haematological infection [Unknown]
  - Pancytopenia [Unknown]
  - Multiple organ dysfunction syndrome [Fatal]
  - Renal impairment [Unknown]
  - Hepatic function abnormal [Unknown]
  - Device related infection [Fatal]
  - Respiratory disorder [Unknown]
  - Haemodynamic instability [Unknown]
  - Candida infection [Fatal]
